FAERS Safety Report 6056176-6 (Version None)
Quarter: 2009Q1

REPORT INFORMATION
  Report Type: 
  Country: None (occurrence: None)
  Receive Date: 20090123
  Receipt Date: 20090123
  Transmission Date: 20090719
  Serious: No
  Sender: FDA-Public Use
  Company Number: None

PATIENT
  Sex: Male
  Weight: 86.1834 kg

DRUGS (1)
  1. SIMCOR [Suspect]
     Indication: BLOOD CHOLESTEROL INCREASED
     Dosage: 20MG 1 DAILY AT BEDTIME PO
     Route: 048

REACTIONS (4)
  - FEELING ABNORMAL [None]
  - GENERALISED ERYTHEMA [None]
  - PRURITUS [None]
  - SKIN BURNING SENSATION [None]
